FAERS Safety Report 6998592-1 (Version None)
Quarter: 2010Q3

REPORT INFORMATION
  Report Type: 
  Country: None (occurrence: None)
  Receive Date: 20100920
  Receipt Date: 20100702
  Transmission Date: 20110219
  Serious: No
  Sender: FDA-Public Use
  Company Number: US-ASTRAZENECA-2007UW25222

PATIENT
  Age: 200 Month
  Sex: Male
  Weight: 191.9 kg

DRUGS (10)
  1. SEROQUEL [Suspect]
     Indication: SUICIDAL IDEATION
     Dosage: 100MG - 400MG
     Route: 048
     Dates: start: 20010201, end: 20031001
  2. SEROQUEL [Suspect]
     Dosage: 25-100 MG
     Route: 048
     Dates: start: 20011030, end: 20020319
  3. PREVACID [Concomitant]
     Dates: start: 20040321
  4. STRATTERA [Concomitant]
     Dosage: 40 AND 60 MG
     Dates: start: 20050521
  5. HYOSCYAMINE [Concomitant]
     Dates: start: 20050521
  6. SYNTHROID [Concomitant]
     Dates: start: 20040321
  7. LIPITOR [Concomitant]
     Dates: start: 20040321
  8. NEURONTIN [Concomitant]
     Dates: start: 20040321
  9. SINGULAIR [Concomitant]
  10. GEODON [Concomitant]

REACTIONS (5)
  - BLOOD TRIGLYCERIDES INCREASED [None]
  - DIABETIC COMPLICATION [None]
  - OBESITY [None]
  - TYPE 1 DIABETES MELLITUS [None]
  - TYPE 2 DIABETES MELLITUS [None]
